FAERS Safety Report 26085102 (Version 1)
Quarter: 2025Q4

REPORT INFORMATION
  Report Type: Spontaneous
  Country: JP (occurrence: JP)
  Receive Date: 20251125
  Receipt Date: 20251125
  Transmission Date: 20260117
  Serious: Yes (Other)
  Sender: ASTELLAS
  Company Number: JP-ASTELLAS-2025-AER-050335

PATIENT
  Age: 68 Year
  Sex: Female

DRUGS (4)
  1. VYLOY [Suspect]
     Active Substance: ZOLBETUXIMAB-CLZB
     Indication: Metastatic gastric cancer
     Route: 065
  2. FLUOROURACIL [Concomitant]
     Active Substance: FLUOROURACIL
     Indication: Metastatic gastric cancer
     Route: 065
  3. Levofolinate [Concomitant]
     Indication: Metastatic gastric cancer
     Route: 065
  4. OXALIPLATIN [Concomitant]
     Active Substance: OXALIPLATIN
     Indication: Metastatic gastric cancer
     Route: 065

REACTIONS (5)
  - Febrile neutropenia [Recovered/Resolved]
  - Ascites [Unknown]
  - Oedema peripheral [Recovered/Resolved]
  - Blood albumin decreased [Recovered/Resolved]
  - Blood albumin decreased [Unknown]
